FAERS Safety Report 4343450-4 (Version None)
Quarter: 2004Q2

REPORT INFORMATION
  Report Type: 
  Country: None (occurrence: None)
  Receive Date: 20040419
  Receipt Date: 20040413
  Transmission Date: 20050107
  Serious: Yes (Other)
  Sender: FDA-Public Use
  Company Number: 2004-03-1836

PATIENT
  Age: 51 Year
  Sex: Male
  Weight: 89.3586 kg

DRUGS (5)
  1. PEG-INTRON [Suspect]
     Indication: HEPATITIS C
     Dosage: 150 MCG QW SUBCUTANEOUS
     Route: 058
     Dates: start: 20030519, end: 20040320
  2. REBETOL [Suspect]
     Indication: HEPATITIS C
     Dosage: 1200 MG QD ORAL
     Route: 048
     Dates: start: 20030519, end: 20040320
  3. ACIPHEX [Concomitant]
  4. EPOGEN [Concomitant]
  5. PAXIL [Concomitant]

REACTIONS (12)
  - ANOREXIA [None]
  - ATELECTASIS [None]
  - COUGH [None]
  - DEPRESSION [None]
  - DRUG TOXICITY [None]
  - DYSPNOEA EXERTIONAL [None]
  - FATIGUE [None]
  - HAEMOLYTIC ANAEMIA [None]
  - LUNG INFILTRATION [None]
  - NAUSEA [None]
  - PULMONARY FIBROSIS [None]
  - PULMONARY FUNCTION TEST ABNORMAL [None]
